FAERS Safety Report 5643445-4 (Version None)
Quarter: 2008Q1

REPORT INFORMATION
  Report Type: 
  Country: None (occurrence: None)
  Receive Date: 20080228
  Receipt Date: 20080216
  Transmission Date: 20080703
  Serious: Yes (Other)
  Sender: FDA-Public Use
  Company Number: US-PFIZER INC-2008006018

PATIENT
  Sex: Female
  Weight: 54.4 kg

DRUGS (2)
  1. CHANTIX [Suspect]
     Indication: TOBACCO ABUSE
     Route: 048
     Dates: start: 20071101, end: 20071101
  2. CHANTIX [Suspect]
     Indication: NICOTINE DEPENDENCE

REACTIONS (8)
  - ABNORMAL BEHAVIOUR [None]
  - AGGRESSION [None]
  - HOSTILITY [None]
  - INSOMNIA [None]
  - POOR QUALITY SLEEP [None]
  - RESTLESSNESS [None]
  - SUICIDAL IDEATION [None]
  - VIOLENCE-RELATED SYMPTOM [None]
